FAERS Safety Report 7315471-0 (Version None)
Quarter: 2011Q1

REPORT INFORMATION
  Report Type: 
  Country: None (occurrence: None)
  Receive Date: 20110225
  Receipt Date: 20110221
  Transmission Date: 20110831
  Serious: Yes (Death)
  Sender: FDA-Public Use
  Company Number: GR-PFIZER INC-2011037339

PATIENT
  Age: 72 Year
  Sex: Male

DRUGS (3)
  1. INSULIN [Concomitant]
  2. FAMCICLOVIR [Concomitant]
  3. METHYLPREDNISOLONE [Suspect]
     Indication: ANAEMIA HAEMOLYTIC AUTOIMMUNE
     Dosage: 64 MG, 1X/DAY
     Route: 048

REACTIONS (2)
  - WEGENER'S GRANULOMATOSIS [None]
  - SEPSIS [None]
